FAERS Safety Report 10007557 (Version 1)
Quarter: 2014Q1

REPORT INFORMATION
  Report Type: Spontaneous
  Country: US (occurrence: US)
  Receive Date: 20140313
  Receipt Date: 20140313
  Transmission Date: 20141002
  Serious: Yes (Other)
  Sender: FDA-Public Use
  Company Number: US-BAYER-2014-034631

PATIENT
  Age: 34 Year
  Sex: Male
  Weight: 82 kg

DRUGS (2)
  1. ALKA-SELTZER PLUS COLD FORMULA [Suspect]
     Indication: CHILLS
     Dosage: 2 DF, UNK
     Route: 048
     Dates: start: 20140228
  2. PRILOSEC [Concomitant]

REACTIONS (7)
  - Aphagia [Not Recovered/Not Resolved]
  - Haematochezia [Not Recovered/Not Resolved]
  - Eructation [Not Recovered/Not Resolved]
  - Appetite disorder [None]
  - Nausea [Not Recovered/Not Resolved]
  - Food aversion [Not Recovered/Not Resolved]
  - Abdominal pain upper [Recovered/Resolved]
